FAERS Safety Report 9714547 (Version 1)
Quarter: 2013Q4

REPORT INFORMATION
  Report Type: Spontaneous
  Country: US (occurrence: US)
  Receive Date: 20131126
  Receipt Date: 20131126
  Transmission Date: 20140711
  Serious: No
  Sender: FDA-Public Use
  Company Number: US-009507513-1311USA009513

PATIENT
  Age: 56 Year
  Sex: Female

DRUGS (2)
  1. PEGINTRON [Suspect]
     Indication: HEPATITIS C
     Dosage: UNK, REDIPEN
     Dates: start: 20131106
  2. REBETOL [Suspect]
     Indication: HEPATITIS C
     Dosage: UNK
     Dates: start: 20131106

REACTIONS (26)
  - Hypopnoea [Unknown]
  - Syncope [Recovered/Resolved]
  - Hypopnoea [Recovered/Resolved]
  - Nervous system disorder [Unknown]
  - Injection site reaction [Unknown]
  - Respiratory disorder [Unknown]
  - Asthenia [Unknown]
  - Dyspnoea [Unknown]
  - Headache [Unknown]
  - Injection site rash [Unknown]
  - Vomiting [Unknown]
  - Decreased appetite [Unknown]
  - Influenza like illness [Unknown]
  - Nasopharyngitis [Unknown]
  - Chills [Unknown]
  - Body temperature increased [Unknown]
  - Pyrexia [Unknown]
  - Pain [Unknown]
  - Nausea [Unknown]
  - Diarrhoea [Unknown]
  - Fatigue [Unknown]
  - Neck pain [Recovered/Resolved]
  - Feeling abnormal [Recovered/Resolved]
  - Cardiac disorder [Unknown]
  - Dizziness [Recovered/Resolved]
  - Dyspnoea [Recovered/Resolved]
